FAERS Safety Report 5494149-2 (Version None)
Quarter: 2007Q4

REPORT INFORMATION
  Report Type: 
  Country: None (occurrence: None)
  Receive Date: 20071024
  Receipt Date: 20071019
  Transmission Date: 20080405
  Serious: Yes (Death, Life-Threatening)
  Sender: FDA-Public Use
  Company Number: PHHO2007JP15228

PATIENT
  Age: 81 Year
  Sex: Female
  Weight: 48 kg

DRUGS (1)
  1. DIOVAN [Suspect]
     Indication: HYPERTENSION
     Dosage: 20 MG, QD
     Route: 048
     Dates: start: 20070106, end: 20070618

REACTIONS (2)
  - CEREBRAL INFARCTION [None]
  - GALLBLADDER CANCER [None]
